FAERS Safety Report 25606121 (Version 2)
Quarter: 2025Q3

REPORT INFORMATION
  Report Type: Spontaneous
  Country: BR (occurrence: BR)
  Receive Date: 20250725
  Receipt Date: 20250807
  Transmission Date: 20251021
  Serious: Yes (Hospitalization, Other)
  Sender: RANBAXY
  Company Number: BR-SUN PHARMACEUTICAL INDUSTRIES INC-2025R1-518549

PATIENT
  Age: 61 Year
  Sex: Male

DRUGS (1)
  1. PROPAFENONE [Suspect]
     Active Substance: PROPAFENONE
     Indication: Atrial fibrillation
     Dosage: 300 MILLIGRAM, BID
     Route: 065

REACTIONS (2)
  - Tachycardia [Unknown]
  - Electrocardiogram abnormal [Unknown]
